FAERS Safety Report 14339498 (Version 2)
Quarter: 2018Q2

REPORT INFORMATION
  Report Type: Spontaneous
  Country: FR (occurrence: FR)
  Receive Date: 20171230
  Receipt Date: 20180509
  Transmission Date: 20180711
  Serious: Yes (Death, Hospitalization, Other)
  Sender: FDA-Public Use
  Company Number: FR-AUROBINDO-AUR-APL-2017-48158

PATIENT
  Sex: Female
  Weight: 6 kg

DRUGS (18)
  1. PARACETAMOL [Suspect]
     Active Substance: ACETAMINOPHEN
     Dosage: 60 MG, UNK
     Route: 048
     Dates: start: 20161110
  2. CAMPATH [Suspect]
     Active Substance: ALEMTUZUMAB
     Dosage: 5.5 MILLIGRAM
     Route: 041
     Dates: start: 20161111, end: 20161112
  3. METHYLPREDNISOLONE. [Suspect]
     Active Substance: METHYLPREDNISOLONE
     Dosage: 0.9 UNK, UNK
     Route: 042
     Dates: start: 20151125, end: 20161126
  4. BACTRIM [Suspect]
     Active Substance: SULFAMETHOXAZOLE\TRIMETHOPRIM
     Dosage: 140 MG, UNK
     Route: 048
     Dates: start: 20161114
  5. SOLU-MEDROL [Concomitant]
     Active Substance: METHYLPREDNISOLONE SODIUM SUCCINATE
     Indication: HISTIOCYTOSIS HAEMATOPHAGIC
     Dosage: 1.6 MG, UNK
     Route: 042
     Dates: start: 20161109, end: 20161224
  6. PARACETAMOL [Suspect]
     Active Substance: ACETAMINOPHEN
     Indication: PREMEDICATION
     Dosage: 2.5 MG, UNK
     Route: 042
     Dates: start: 20161124, end: 20161125
  7. CAMPATH [Suspect]
     Active Substance: ALEMTUZUMAB
     Indication: FAMILIAL HAEMOPHAGOCYTIC LYMPHOHISTIOCYTOSIS
     Dosage: 2.75 MILLIGRAM
     Route: 041
     Dates: start: 20161110, end: 20161110
  8. DEXCHLORPHENIRAMINE [Suspect]
     Active Substance: DEXCHLORPHENIRAMINE
     Indication: PREMEDICATION
     Dosage: 2.5 MG, UNK
     Route: 042
     Dates: start: 20161124, end: 20161125
  9. UVESTEROL D [Concomitant]
     Active Substance: ERGOCALCIFEROL
     Indication: NUTRITIONAL SUPPLEMENTATION
     Dosage: 1 DF, UNK
     Route: 048
     Dates: start: 20161110, end: 20161216
  10. CAMPATH [Suspect]
     Active Substance: ALEMTUZUMAB
     Dosage: 5.4 MILLIGRAM
     Route: 041
     Dates: start: 20161124, end: 20161124
  11. METHYLPREDNISOLONE. [Suspect]
     Active Substance: METHYLPREDNISOLONE
     Dosage: 1 UNK, UNK
     Route: 042
     Dates: end: 20161224
  12. CYCLOSPORINE. [Concomitant]
     Active Substance: CYCLOSPORINE
     Indication: PREMEDICATION
     Dosage: 7 MILLIGRAM
     Route: 042
     Dates: start: 20161110
  13. METHYLPREDNISOLONE. [Suspect]
     Active Substance: METHYLPREDNISOLONE
     Dosage: 140 MG, UNK
     Route: 042
     Dates: start: 20161124, end: 20161125
  14. BACTRIM [Suspect]
     Active Substance: SULFAMETHOXAZOLE\TRIMETHOPRIM
     Indication: PROPHYLAXIS
     Dosage: 40 MG, UNK
     Route: 042
     Dates: start: 20161119, end: 20161205
  15. PARACETAMOL [Suspect]
     Active Substance: ACETAMINOPHEN
     Dosage: 7.5 MG/KG, UNK
     Route: 042
     Dates: start: 20161125, end: 20161126
  16. CAMPATH [Suspect]
     Active Substance: ALEMTUZUMAB
     Dosage: 2.5 MILLIGRAM
     Route: 041
     Dates: start: 20161125, end: 20161125
  17. CYCLOSPORINE. [Concomitant]
     Active Substance: CYCLOSPORINE
     Indication: HISTIOCYTOSIS HAEMATOPHAGIC
     Dosage: 10.6 MILLIGRAM
     Route: 042
     Dates: start: 20161109
  18. METHYLPREDNISOLONE. [Suspect]
     Active Substance: METHYLPREDNISOLONE
     Indication: FAMILIAL HAEMOPHAGOCYTIC LYMPHOHISTIOCYTOSIS
     Dosage: 12 MG, UNK
     Route: 042
     Dates: start: 20151110

REACTIONS (13)
  - Tachycardia [Recovered/Resolved]
  - Pseudomonal bacteraemia [Recovering/Resolving]
  - Sepsis [Recovering/Resolving]
  - Pyrexia [Recovering/Resolving]
  - Livedo reticularis [Recovered/Resolved]
  - Parenteral nutrition [Fatal]
  - Chills [Recovered/Resolved]
  - Pseudomonas test positive [Recovered/Resolved]
  - Injection site haemorrhage [Unknown]
  - Neutropenia [Recovered/Resolved]
  - Lung abscess [Recovering/Resolving]
  - Pulmonary embolism [Recovered/Resolved]
  - Pseudomonal sepsis [Recovered/Resolved]

NARRATIVE: CASE EVENT DATE: 20161128
